FAERS Safety Report 20324188 (Version 1)
Quarter: 2022Q1

REPORT INFORMATION
  Report Type: Spontaneous
  Country: US (occurrence: US)
  Receive Date: 20220111
  Receipt Date: 20220111
  Transmission Date: 20220424
  Serious: No
  Sender: FDA-Public Use
  Company Number: US-PFIZER INC-202101361989

PATIENT
  Age: 64 Year
  Sex: Female

DRUGS (2)
  1. IBRANCE [Suspect]
     Active Substance: PALBOCICLIB
     Dosage: UNK
     Dates: start: 20180518, end: 20210615
  2. FASLODEX [Concomitant]
     Active Substance: FULVESTRANT
     Dosage: UNK
     Dates: start: 20180518, end: 20210615

REACTIONS (3)
  - Nausea [Unknown]
  - Pruritus [Unknown]
  - Fatigue [Unknown]

NARRATIVE: CASE EVENT DATE: 20210615
